FAERS Safety Report 6905111-4 (Version None)
Quarter: 2010Q3

REPORT INFORMATION
  Report Type: 
  Country: None (occurrence: None)
  Receive Date: 20100804
  Receipt Date: 20090917
  Transmission Date: 20110219
  Serious: No
  Sender: FDA-Public Use
  Company Number: US-PFIZER INC-2009246068

PATIENT
  Sex: Male
  Weight: 115.19 kg

DRUGS (3)
  1. LYRICA [Suspect]
     Indication: BURNING SENSATION
     Dosage: 50 MG, 2X/DAY
     Route: 048
     Dates: start: 20090714, end: 20090701
  2. LYRICA [Suspect]
     Indication: PAIN
  3. FUROSEMIDE [Concomitant]
     Dosage: UNK

REACTIONS (2)
  - JOINT SWELLING [None]
  - OEDEMA PERIPHERAL [None]
